FAERS Safety Report 7710727-1 (Version None)
Quarter: 2011Q3

REPORT INFORMATION
  Report Type: 
  Country: None (occurrence: None)
  Receive Date: 20110825
  Receipt Date: 20110816
  Transmission Date: 20111222
  Serious: Yes (Hospitalization, Other)
  Sender: FDA-Public Use
  Company Number: US-ASTRAZENECA-2011SE36044

PATIENT
  Age: 73 Year
  Sex: Female
  Weight: 64 kg

DRUGS (28)
  1. ATACAND [Suspect]
     Route: 048
  2. LISINOPRIL [Suspect]
     Route: 048
  3. TOPROL-XL [Suspect]
     Route: 048
  4. LOSARTAN POTASSIUM [Suspect]
  5. MACROBID [Suspect]
  6. VALSARTAN [Suspect]
  7. NOPALEA [Suspect]
     Indication: BLOOD TRIGLYCERIDES INCREASED
     Dates: start: 20100101
  8. NORVASC [Suspect]
     Indication: HYPERTENSION
     Dates: start: 19950101
  9. NORVASC [Suspect]
     Dates: start: 19970101
  10. XANAX [Suspect]
  11. CARDIZEM [Suspect]
  12. DEPAKOTE [Suspect]
     Indication: CONVULSION
     Dates: start: 19960101
  13. CIPROFLOXACIN [Suspect]
  14. REGLAN [Suspect]
  15. LIDOCAINE [Suspect]
     Indication: INGROWING NAIL
     Dates: start: 20100513, end: 20100513
  16. ATACAND [Suspect]
     Indication: HYPERTENSION
     Route: 048
     Dates: start: 19960101
  17. BACTRIM [Suspect]
  18. LEVOTHYROXINE SODIUM [Concomitant]
  19. FUROSEMIDE [Suspect]
  20. NOPALEA [Suspect]
     Indication: ARTHRALGIA
     Dates: start: 20100101
  21. BENICAR [Suspect]
     Indication: HYPERTENSION
     Dates: end: 20070101
  22. AVAPRO [Suspect]
     Indication: HYPERTENSION
  23. HYDROCHLOROTHIAZIDE [Suspect]
     Dates: start: 20110307
  24. NORVASC [Suspect]
     Dates: start: 20100101
  25. DILANTIN [Suspect]
     Dates: start: 19960101
  26. NEBIVOLOL HCL [Suspect]
  27. LEVAQUIN [Suspect]
  28. CLONIDINE [Concomitant]
     Indication: BLOOD PRESSURE

REACTIONS (21)
  - BURNING SENSATION [None]
  - INGROWING NAIL [None]
  - WEIGHT DECREASED [None]
  - CYSTITIS [None]
  - INSOMNIA [None]
  - ARTERIOGRAM CORONARY ABNORMAL [None]
  - CHOLECYSTECTOMY [None]
  - LOSS OF CONSCIOUSNESS [None]
  - GASTRIC DISORDER [None]
  - BLOOD COUNT ABNORMAL [None]
  - FULL BLOOD COUNT DECREASED [None]
  - PLATELET COUNT DECREASED [None]
  - ANAEMIA [None]
  - TOE OPERATION [None]
  - PALPITATIONS [None]
  - HYPOAESTHESIA [None]
  - ABDOMINAL PAIN [None]
  - BLOOD PRESSURE INCREASED [None]
  - HEADACHE [None]
  - DIZZINESS [None]
  - BLOOD TRIGLYCERIDES INCREASED [None]
